FAERS Safety Report 12897753 (Version 2)
Quarter: 2016Q4

REPORT INFORMATION
  Report Type: Spontaneous
  Country: US (occurrence: US)
  Receive Date: 20161031
  Receipt Date: 20161222
  Transmission Date: 20170207
  Serious: No
  Sender: FDA-Public Use
  Company Number: US-PFIZER INC-2016504513

PATIENT
  Sex: Male

DRUGS (1)
  1. SUTENT [Suspect]
     Active Substance: SUNITINIB MALATE
     Dosage: 25 MG, CYCLIC (ONE CAP DAILY FOR 28 DAYS ON 14 DAYS OFF)
     Dates: start: 20140718

REACTIONS (6)
  - Alopecia [Unknown]
  - Pain in extremity [Unknown]
  - Fatigue [Unknown]
  - Ageusia [Unknown]
  - Yellow skin [Unknown]
  - Hair colour changes [Unknown]
